FAERS Safety Report 14367369 (Version 1)
Quarter: 2018Q1

REPORT INFORMATION
  Report Type: Spontaneous
  Country: US (occurrence: US)
  Receive Date: 20180108
  Receipt Date: 20180108
  Transmission Date: 20180509
  Serious: Yes (Other)
  Sender: FDA-Public Use
  Company Number: None

PATIENT
  Sex: Female
  Weight: 65.25 kg

DRUGS (10)
  1. PLAVIX [Concomitant]
     Active Substance: CLOPIDOGREL BISULFATE
  2. SPIRONOLACTONE. [Concomitant]
     Active Substance: SPIRONOLACTONE
  3. CALCIUM [Concomitant]
     Active Substance: CALCIUM
  4. VITAMIN D [Concomitant]
     Active Substance: CHOLECALCIFEROL
  5. CRESTOR [Concomitant]
     Active Substance: ROSUVASTATIN CALCIUM
  6. XOPENEX HFA RESCUE INHALER [Concomitant]
  7. MULTIVITAMINS [Concomitant]
     Active Substance: VITAMINS
  8. ASMANEX HFA [Suspect]
     Active Substance: MOMETASONE FUROATE
     Indication: ASTHMA
     Dosage: ?          OTHER STRENGTH:MCG;QUANTITY:2 INHALATION(S);?
     Route: 055
     Dates: start: 20170802, end: 20170805
  9. ATENOLOL. [Concomitant]
     Active Substance: ATENOLOL
  10. MAGNESIUM [Concomitant]
     Active Substance: MAGNESIUM

REACTIONS (7)
  - Panic attack [None]
  - Condition aggravated [None]
  - Asthma [None]
  - Product substitution issue [None]
  - Fear [None]
  - Drug ineffective [None]
  - Economic problem [None]

NARRATIVE: CASE EVENT DATE: 20170802
